FAERS Safety Report 22800412 (Version 3)
Quarter: 2023Q4

REPORT INFORMATION
  Report Type: Spontaneous
  Country: US (occurrence: US)
  Receive Date: 20230808
  Receipt Date: 20231024
  Transmission Date: 20240110
  Serious: No
  Sender: FDA-Public Use
  Company Number: US-PFIZER INC-PV202300136236

PATIENT
  Age: 41 Year
  Sex: Female

DRUGS (5)
  1. DOCETAXEL [Suspect]
     Active Substance: DOCETAXEL
     Indication: Breast cancer female
     Dosage: 135 MG, SINGLE (CYCLE 1)
     Dates: start: 20121109, end: 20121109
  2. DOCETAXEL [Suspect]
     Active Substance: DOCETAXEL
     Dosage: 135 MG, SINGLE (CYCLE 2)
     Dates: start: 20121130, end: 20121130
  3. DOCETAXEL [Suspect]
     Active Substance: DOCETAXEL
     Dosage: 134 MG, SINGLE (CYCLE 3)
     Dates: start: 20121221, end: 20121221
  4. DOCETAXEL [Suspect]
     Active Substance: DOCETAXEL
     Dosage: UNK, CYCLIC (CYCLE 4-6)
     Dates: start: 201301, end: 20130301
  5. CYTOXAN [Concomitant]
     Active Substance: CYCLOPHOSPHAMIDE
     Indication: Chemotherapy
     Dosage: UNK

REACTIONS (3)
  - Lacrimation increased [Unknown]
  - Lacrimal structure injury [Not Recovered/Not Resolved]
  - Dacryostenosis acquired [Unknown]

NARRATIVE: CASE EVENT DATE: 20120101
